FAERS Safety Report 24578957 (Version 1)
Quarter: 2024Q4

REPORT INFORMATION
  Report Type: Spontaneous
  Country: IT (occurrence: IT)
  Receive Date: 20241105
  Receipt Date: 20241105
  Transmission Date: 20250115
  Serious: Yes (Hospitalization, Other)
  Sender: AUROBINDO
  Company Number: IT-MINISAL02-1007572

PATIENT
  Age: 68 Year
  Sex: Male

DRUGS (2)
  1. AMOXICILLIN [Interacting]
     Active Substance: AMOXICILLIN
     Indication: Bacterial infection
     Dosage: 1 GRAM
     Route: 048
     Dates: start: 20240627, end: 20240627
  2. ALLOPURINOL [Suspect]
     Active Substance: ALLOPURINOL
     Indication: Hyperuricaemia
     Dosage: 300 MILLIGRAM, ONCE A DAY
     Route: 048
     Dates: start: 202401, end: 20240628

REACTIONS (3)
  - Drug reaction with eosinophilia and systemic symptoms [Recovered/Resolved]
  - Rash [Recovered/Resolved]
  - Hypotension [Recovered/Resolved]

NARRATIVE: CASE EVENT DATE: 20240628
